FAERS Safety Report 8458592-1 (Version None)
Quarter: 2012Q2

REPORT INFORMATION
  Report Type: 
  Country: None (occurrence: None)
  Receive Date: 20120615
  Receipt Date: 20120611
  Transmission Date: 20120825
  Serious: Yes (Hospitalization, Other)
  Sender: FDA-Public Use
  Company Number: AUR-APL-2012-02476

PATIENT
  Age: 76 Year
  Sex: Male

DRUGS (2)
  1. DICLOFENAC SODIUM [Suspect]
     Indication: GINGIVAL INFECTION
  2. METFORMIN HCL [Suspect]
     Indication: DIABETIC NEUROPATHY

REACTIONS (12)
  - VOMITING [None]
  - LACTIC ACIDOSIS [None]
  - DISORIENTATION [None]
  - GINGIVAL INFECTION [None]
  - VASOPLEGIA SYNDROME [None]
  - DEHYDRATION [None]
  - BLOOD GLUCOSE INCREASED [None]
  - SHOCK [None]
  - RENAL FAILURE ACUTE [None]
  - AGITATION [None]
  - ATRIAL FIBRILLATION [None]
  - CONTINUOUS HAEMODIAFILTRATION [None]
